FAERS Safety Report 12616568 (Version 1)
Quarter: 2016Q3

REPORT INFORMATION
  Report Type: Spontaneous
  Country: US (occurrence: US)
  Receive Date: 20160802
  Receipt Date: 20160802
  Transmission Date: 20161109
  Serious: No
  Sender: FDA-Public Use
  Company Number: US-IMPAX LABORATORIES, INC-2015-IPXL-01028

PATIENT
  Age: 45 Year
  Sex: Female
  Weight: 70 kg

DRUGS (4)
  1. ALBENZA [Suspect]
     Active Substance: ALBENDAZOLE
     Dosage: 200 MG, 1 /DAY
     Route: 048
     Dates: start: 20150928, end: 20151002
  2. ALBENZA [Suspect]
     Active Substance: ALBENDAZOLE
     Dosage: 200 MG, 2 /DAY
     Route: 048
     Dates: start: 20151003
  3. TOPAMAX [Concomitant]
     Active Substance: TOPIRAMATE
     Indication: HEADACHE
     Dosage: 25 MG, 1 /DAY (AT BED TIME)
     Route: 048
  4. PREDNISONE. [Concomitant]
     Active Substance: PREDNISONE
     Indication: PRODUCT USED FOR UNKNOWN INDICATION
     Dosage: 40 MG, 2 /DAY
     Route: 048

REACTIONS (3)
  - White blood cell count increased [Unknown]
  - Dizziness [Unknown]
  - Inappropriate schedule of drug administration [Recovered/Resolved]

NARRATIVE: CASE EVENT DATE: 20150928
